FAERS Safety Report 17560304 (Version 2)
Quarter: 2022Q3

REPORT INFORMATION
  Report Type: Spontaneous
  Country: US (occurrence: US)
  Receive Date: 20200319
  Receipt Date: 20220914
  Transmission Date: 20221027
  Serious: Yes (Other)
  Sender: FDA-Public Use
  Company Number: US-SUN PHARMACEUTICAL INDUSTRIES LTD-2020R1-240619

PATIENT
  Age: 31 Year
  Sex: Female

DRUGS (11)
  1. NIFEDIPINE [Suspect]
     Active Substance: NIFEDIPINE
     Indication: Tocolysis
     Dosage: UNK (20 MG)
     Route: 048
  2. NIFEDIPINE [Suspect]
     Active Substance: NIFEDIPINE
     Dosage: UNK (10 MG)
     Route: 048
  3. NOREPINEPHRINE [Suspect]
     Active Substance: NOREPINEPHRINE
     Dosage: UNK
     Route: 065
  4. NOREPINEPHRINE [Suspect]
     Active Substance: NOREPINEPHRINE
     Indication: Blood pressure management
  5. NOREPINEPHRINE [Suspect]
     Active Substance: NOREPINEPHRINE
  6. CALCIUM GLUCONATE [Suspect]
     Active Substance: CALCIUM GLUCONATE
     Dosage: UNK
     Route: 065
  7. CALCIUM GLUCONATE [Suspect]
     Active Substance: CALCIUM GLUCONATE
     Indication: Product used for unknown indication
  8. CALCIUM GLUCONATE [Suspect]
     Active Substance: CALCIUM GLUCONATE
  9. PHENYLEPHRINE [Suspect]
     Active Substance: PHENYLEPHRINE HYDROCHLORIDE
     Dosage: UNK
     Route: 042
  10. PHENYLEPHRINE [Suspect]
     Active Substance: PHENYLEPHRINE HYDROCHLORIDE
     Indication: Hypotension
  11. PHENYLEPHRINE [Suspect]
     Active Substance: PHENYLEPHRINE HYDROCHLORIDE

REACTIONS (4)
  - Shock [Recovered/Resolved]
  - Hypotension [Recovered/Resolved]
  - Vasodilatation [Recovered/Resolved]
  - Exposure during pregnancy [Unknown]
